FAERS Safety Report 8463695-1 (Version None)
Quarter: 2012Q2

REPORT INFORMATION
  Report Type: 
  Country: None (occurrence: None)
  Receive Date: 20120625
  Receipt Date: 20120614
  Transmission Date: 20120825
  Serious: No
  Sender: FDA-Public Use
  Company Number: US-JNJFOC-20120412199

PATIENT
  Sex: Male
  Weight: 92.08 kg

DRUGS (7)
  1. EXTRA STRENGTH TYLENOL [Suspect]
     Route: 048
  2. SEPTRA DS [Concomitant]
     Indication: LOCALISED INFECTION
     Dosage: 800-160 MG
     Route: 065
     Dates: start: 20120416, end: 20120419
  3. CELEXA [Concomitant]
     Indication: DEPRESSION
     Dosage: 40-60 MG
     Route: 065
  4. AMBIEN [Concomitant]
     Indication: INSOMNIA
     Route: 065
  5. EXTRA STRENGTH TYLENOL [Suspect]
     Indication: PAIN
     Dosage: 1/2 OUNCE AND 8 HOURS LATER 1/2 OZ.
     Route: 048
     Dates: start: 20120418, end: 20120401
  6. VALACYCLOVIR HYDROCHLORIDE [Suspect]
     Indication: INFECTION
     Route: 065
     Dates: start: 20120416, end: 20120419
  7. SEPTRA [Suspect]
     Indication: INFECTION
     Dosage: 800-160MG
     Route: 048
     Dates: start: 20120416

REACTIONS (2)
  - URTICARIA [None]
  - HYPERSENSITIVITY [None]
